FAERS Safety Report 7548583-7 (Version None)
Quarter: 2011Q2

REPORT INFORMATION
  Report Type: 
  Country: None (occurrence: None)
  Receive Date: 20110608
  Receipt Date: 20110525
  Transmission Date: 20111010
  Serious: Yes (Death)
  Sender: FDA-Public Use
  Company Number: 2011-241

PATIENT
  Age: 86 Year
  Sex: Female

DRUGS (4)
  1. IPRATROPIUM BROMIDE [Concomitant]
  2. ALBUTEROL [Concomitant]
  3. MORPHINE [Concomitant]
  4. CLOZAPINE (FAZACLO) [Suspect]
     Indication: SCHIZOPHRENIA
     Dosage: 12.5 MG, QD, ORAL
     Route: 048
     Dates: start: 20110314, end: 20110425

REACTIONS (1)
  - RESPIRATORY FAILURE [None]
